FAERS Safety Report 19972146 (Version 3)
Quarter: 2022Q1

REPORT INFORMATION
  Report Type: Spontaneous
  Country: AT (occurrence: TR)
  Receive Date: 20211019
  Receipt Date: 20220125
  Transmission Date: 20220423
  Serious: Yes (Other)
  Sender: FDA-Public Use
  Company Number: DE-DSJP-DSE-2021-134089

PATIENT
  Age: 67 Year
  Sex: Female

DRUGS (1)
  1. EDOXABAN TOSYLATE [Suspect]
     Active Substance: EDOXABAN TOSYLATE
     Indication: Product used for unknown indication
     Dosage: UNK
     Route: 065
     Dates: start: 2018

REACTIONS (2)
  - Accident [Unknown]
  - Spinal fracture [Unknown]
